FAERS Safety Report 11008815 (Version 1)
Quarter: 2015Q2

REPORT INFORMATION
  Report Type: Spontaneous
  Country: US (occurrence: None)
  Receive Date: 20150409
  Receipt Date: 20150409
  Transmission Date: 20150821
  Serious: Yes (Hospitalization)
  Sender: FDA-Public Use
  Company Number: None

PATIENT
  Age: 95 Year
  Sex: Male
  Weight: 80.4 kg

DRUGS (3)
  1. OXAZEPAM. [Suspect]
     Active Substance: OXAZEPAM
     Indication: ANXIETY
     Route: 048
     Dates: start: 20140923, end: 20150205
  2. RISPERIDONE. [Suspect]
     Active Substance: RISPERIDONE
     Indication: AGITATION
     Dates: start: 20130712
  3. RISPERIDONE. [Suspect]
     Active Substance: RISPERIDONE
     Indication: SLEEP DISORDER
     Dates: start: 20130712

REACTIONS (8)
  - Confusional state [None]
  - Laceration [None]
  - Delirium [None]
  - Pneumonia [None]
  - Atrial fibrillation [None]
  - Fibula fracture [None]
  - Fall [None]
  - Contusion [None]

NARRATIVE: CASE EVENT DATE: 20150201
